FAERS Safety Report 6318405-0 (Version None)
Quarter: 2009Q3

REPORT INFORMATION
  Report Type: 
  Country: None (occurrence: None)
  Receive Date: 20090820
  Receipt Date: 20090820
  Transmission Date: 20100115
  Serious: Yes (Hospitalization)
  Sender: FDA-Public Use
  Company Number: None

PATIENT
  Sex: Male
  Weight: 17.9 kg

DRUGS (27)
  1. CYCLOPHOSPHAMIDE [Suspect]
     Dosage: 4020 MG
  2. G-CSF (FILGRASTIM, AMGEN) [Suspect]
     Dosage: 1014 MCG
  3. MESNA [Suspect]
     Dosage: 2412 MG
  4. THIOTEPA [Suspect]
     Dosage: 603 MG
  5. CIPROFLOXACIN [Concomitant]
  6. CLINDAMYCIN [Concomitant]
  7. DAPTOMICIN [Concomitant]
  8. DIPHENIHYDRAMINE [Concomitant]
  9. FENTANYL [Concomitant]
  10. FLUCONAZOLE [Concomitant]
  11. FUROSEMIDE [Concomitant]
  12. GENTAMICIN [Concomitant]
  13. KETAMINE HCL [Concomitant]
  14. LORAZEPAM [Concomitant]
  15. METOCLOPRAMIDE [Concomitant]
  16. MIDAZOLAM HCL [Concomitant]
  17. MORPHINE [Concomitant]
  18. MOXIFLOXACIN HCL [Concomitant]
  19. OCTREOTIDE [Concomitant]
  20. ONDANSETRON [Concomitant]
  21. OXYCODONE [Concomitant]
  22. PANTOPRAZOLE SODIUM [Concomitant]
  23. PIPERACILLIN SODIUM AND TAZOBACTAM SODIUM [Concomitant]
  24. SULFAMETHOXAZOLE AND TRIMETHOPRIM [Concomitant]
  25. VANCOMYCIN [Concomitant]
  26. VITAMIN E [Concomitant]
  27. VORICONAZOLE [Concomitant]

REACTIONS (6)
  - ASCITES [None]
  - COMPUTERISED TOMOGRAM ABNORMAL [None]
  - LUMBAR PUNCTURE ABNORMAL [None]
  - NUCLEAR MAGNETIC RESONANCE IMAGING ABNORMAL [None]
  - RESPIRATORY DISTRESS [None]
  - SOMNOLENCE [None]
